FAERS Safety Report 20788919 (Version 1)
Quarter: 2022Q2

REPORT INFORMATION
  Report Type: Spontaneous
  Country: US (occurrence: US)
  Receive Date: 20220505
  Receipt Date: 20220505
  Transmission Date: 20220721
  Serious: No
  Sender: FDA-Public Use
  Company Number: US-UCBSA-2021014707

PATIENT
  Sex: Female

DRUGS (1)
  1. CIMZIA [Suspect]
     Active Substance: CERTOLIZUMAB PEGOL
     Indication: Crohn^s disease
     Dosage: 800 MILLIGRAM, EV 4 WEEKS
     Route: 058
     Dates: start: 20101129

REACTIONS (2)
  - Abdominal symptom [Unknown]
  - Incorrect dose administered [Unknown]
